FAERS Safety Report 8302048-3 (Version None)
Quarter: 2012Q2

REPORT INFORMATION
  Report Type: 
  Country: None (occurrence: None)
  Receive Date: 20120420
  Receipt Date: 20120411
  Transmission Date: 20120825
  Serious: Yes (Hospitalization, Other)
  Sender: FDA-Public Use
  Company Number: US-MERCK-1106USA00669

PATIENT
  Age: 69 Year
  Sex: Female

DRUGS (5)
  1. NEXIUM [Concomitant]
     Route: 065
     Dates: start: 20090101
  2. CALCIUM (UNSPECIFIED) [Concomitant]
     Route: 065
     Dates: start: 20010101
  3. VITAMIN D (UNSPECIFIED) [Concomitant]
     Route: 065
     Dates: start: 20010101
  4. FOSAMAX [Suspect]
     Indication: OSTEOPOROSIS
     Route: 048
     Dates: start: 20000101, end: 20090602
  5. ALENDRONATE SODIUM [Suspect]
     Indication: OSTEOPOROSIS
     Route: 048
     Dates: start: 20090603, end: 20110101

REACTIONS (38)
  - FEMORAL NECK FRACTURE [None]
  - BRONCHOSPASM [None]
  - OSTEOARTHRITIS [None]
  - VITAMIN D DEFICIENCY [None]
  - VULVOVAGINAL CANDIDIASIS [None]
  - UTERINE DISORDER [None]
  - URINARY TRACT INFECTION [None]
  - BRONCHITIS [None]
  - GALLBLADDER DISORDER [None]
  - LOWER LIMB FRACTURE [None]
  - BURSITIS [None]
  - SLEEP APNOEA SYNDROME [None]
  - DIARRHOEA [None]
  - FATIGUE [None]
  - SCIATICA [None]
  - RASH [None]
  - DEPRESSION [None]
  - POLLAKIURIA [None]
  - RESTLESS LEGS SYNDROME [None]
  - ADENOMA BENIGN [None]
  - CHRONIC OBSTRUCTIVE PULMONARY DISEASE [None]
  - OESOPHAGITIS [None]
  - GASTROOESOPHAGEAL REFLUX DISEASE [None]
  - TENDONITIS [None]
  - DERMATITIS ALLERGIC [None]
  - DUODENITIS [None]
  - PANCREATIC DISORDER [None]
  - HYPERCHOLESTEROLAEMIA [None]
  - HERNIA [None]
  - OEDEMA PERIPHERAL [None]
  - ARTHROPATHY [None]
  - ABDOMINAL PAIN [None]
  - ARTHRITIS [None]
  - MUSCULOSKELETAL CHEST PAIN [None]
  - MICTURITION URGENCY [None]
  - DYSURIA [None]
  - KIDNEY INFECTION [None]
  - CALCIUM DEFICIENCY [None]
